FAERS Safety Report 13069025 (Version 1)
Quarter: 2016Q4

REPORT INFORMATION
  Report Type: Spontaneous
  Country: PT (occurrence: PT)
  Receive Date: 20161228
  Receipt Date: 20161228
  Transmission Date: 20170207
  Serious: Yes (Other)
  Sender: FDA-Public Use
  Company Number: PT-FRESENIUS KABI-FK201610250

PATIENT
  Age: 17 Year
  Sex: Female

DRUGS (1)
  1. PARACETAMOL (MANUFACTURER UNKNOWN) [Suspect]
     Active Substance: ACETAMINOPHEN
     Indication: PRODUCT USED FOR UNKNOWN INDICATION
     Route: 048

REACTIONS (4)
  - Eosinophilic oesophagitis [Unknown]
  - Dyspnoea [Unknown]
  - Salivary hypersecretion [Unknown]
  - Cyanosis [Unknown]
